FAERS Safety Report 18220618 (Version 1)
Quarter: 2020Q3

REPORT INFORMATION
  Report Type: Report from Study
  Country: ZA (occurrence: ZA)
  Receive Date: 20200902
  Receipt Date: 20200902
  Transmission Date: 20201103
  Serious: Yes (Other)
  Sender: FDA-Public Use
  Company Number: ZA-EMD SERONO-9183194

PATIENT
  Age: 60 Year
  Sex: Female

DRUGS (1)
  1. REBIF [Suspect]
     Active Substance: INTERFERON BETA-1A
     Indication: MULTIPLE SCLEROSIS
     Dates: start: 20131204

REACTIONS (4)
  - Type 2 diabetes mellitus [Unknown]
  - Renal failure [Unknown]
  - Skin lesion [Unknown]
  - Impaired healing [Unknown]

NARRATIVE: CASE EVENT DATE: 20200622
